FAERS Safety Report 23044380 (Version 3)
Quarter: 2023Q4

REPORT INFORMATION
  Report Type: Spontaneous
  Country: US (occurrence: US)
  Receive Date: 20231009
  Receipt Date: 20231030
  Transmission Date: 20240110
  Serious: No
  Sender: FDA-Public Use
  Company Number: US-SA-SAC20231003001036

PATIENT
  Age: 27 Year
  Sex: Female
  Weight: 56 kg

DRUGS (14)
  1. DUPIXENT [Suspect]
     Active Substance: DUPILUMAB
     Indication: Dermatitis atopic
     Dosage: 300 MG, QOW
     Route: 058
  2. TRIAMCINOLONE ACETONIDE [Suspect]
     Active Substance: TRIAMCINOLONE ACETONIDE
     Indication: Dermatitis atopic
     Dosage: UNK
  3. TACROLIMUS [Suspect]
     Active Substance: TACROLIMUS
     Dosage: UNK
  4. EUCRISA [Suspect]
     Active Substance: CRISABOROLE
     Dosage: UNK
  5. PIMECROLIMUS [Suspect]
     Active Substance: PIMECROLIMUS
     Dosage: UNK
  6. DESONIDE [Suspect]
     Active Substance: DESONIDE
     Dosage: UNK
  7. CLOBETASOL [Suspect]
     Active Substance: CLOBETASOL
     Dosage: UNK
  8. CIBINQO [Concomitant]
     Active Substance: ABROCITINIB
     Dosage: UNK
  9. TRETINOIN [Concomitant]
     Active Substance: TRETINOIN
     Dosage: UNK
  10. PROTOPIC [Concomitant]
     Active Substance: TACROLIMUS
     Dosage: UNK
  11. ACYCLOVIR [Concomitant]
     Active Substance: ACYCLOVIR
     Dosage: UNK
  12. LORYNA [Concomitant]
     Active Substance: DROSPIRENONE\ETHINYL ESTRADIOL
     Dosage: LORYNA 0.02-3(28)
  13. TRIAMCINOLONE [Concomitant]
     Active Substance: TRIAMCINOLONE
     Dosage: UNK
  14. ISOTRETINOIN [Concomitant]
     Active Substance: ISOTRETINOIN
     Dosage: UNK

REACTIONS (4)
  - Erythema [Recovered/Resolved]
  - Dermatitis atopic [Unknown]
  - Condition aggravated [Unknown]
  - Therapeutic response decreased [Unknown]
